FAERS Safety Report 6875700-4 (Version None)
Quarter: 2010Q3

REPORT INFORMATION
  Report Type: 
  Country: None (occurrence: None)
  Receive Date: 20100727
  Receipt Date: 20071024
  Transmission Date: 20110219
  Serious: Yes (Hospitalization, Other)
  Sender: FDA-Public Use
  Company Number: US-PFIZER INC-2006150648

PATIENT
  Sex: Female
  Weight: 81.6 kg

DRUGS (9)
  1. CELEBREX [Suspect]
     Indication: ARTHRITIS
     Route: 048
     Dates: start: 20011217
  2. VIOXX [Suspect]
     Indication: ARTHRITIS
     Route: 048
     Dates: start: 20020101
  3. LOTREL [Concomitant]
     Indication: HYPERTENSION
     Dates: start: 20040218, end: 20040917
  4. LASIX [Concomitant]
     Indication: OEDEMA PERIPHERAL
     Dates: start: 20040218, end: 20040917
  5. CATAPRES [Concomitant]
     Indication: HYPERTENSION
     Dates: start: 20040218, end: 20040917
  6. LIPITOR [Concomitant]
     Indication: BLOOD CHOLESTEROL INCREASED
     Dates: start: 20040218, end: 20041015
  7. ASPIRIN [Concomitant]
     Indication: ISCHAEMIC HEART DISEASE PROPHYLAXIS
     Dates: start: 20040201
  8. ZOCOR [Concomitant]
     Indication: BLOOD CHOLESTEROL INCREASED
     Dates: start: 20030509
  9. NEURONTIN [Concomitant]
     Dates: start: 20040604, end: 20050318

REACTIONS (2)
  - CEREBROVASCULAR ACCIDENT [None]
  - MYOCARDIAL INFARCTION [None]
